FAERS Safety Report 7769704-7 (Version None)
Quarter: 2011Q3

REPORT INFORMATION
  Report Type: 
  Country: None (occurrence: None)
  Receive Date: 20110922
  Receipt Date: 20110418
  Transmission Date: 20111222
  Serious: No
  Sender: FDA-Public Use
  Company Number: US-ASTRAZENECA-2011SE22432

PATIENT
  Age: 40 Year
  Sex: Male

DRUGS (5)
  1. WELLBUTRIN SR [Concomitant]
  2. OXYCODONE HCL [Concomitant]
  3. SEROQUEL [Suspect]
     Route: 048
  4. PAROXETINE HYDROCHLORIDE [Concomitant]
  5. SOMA [Concomitant]

REACTIONS (1)
  - DRUG SCREEN FALSE POSITIVE [None]
